FAERS Safety Report 4617025-3 (Version None)
Quarter: 2005Q1

REPORT INFORMATION
  Report Type: 
  Country: None (occurrence: None)
  Receive Date: 20050321
  Receipt Date: 20050311
  Transmission Date: 20050727
  Serious: Yes (Death)
  Sender: FDA-Public Use
  Company Number: HQWYE060311MAR05

PATIENT
  Age: 61 Year
  Sex: Male

DRUGS (5)
  1. ZURCALE               (PANTOPRAZOLE, DELAYED RELEASE) [Suspect]
     Indication: GASTROOESOPHAGEAL REFLUX DISEASE
     Dosage: 40 MG 1X PER 1 DAY ORAL
     Route: 048
     Dates: start: 20040427, end: 20040101
  2. ANTINEOPLASTIC AGENT                                 (ANTINEOPLASTIC A [Concomitant]
  3. MEDROL [Concomitant]
  4. BUMETANIDE [Concomitant]
  5. SERETIDE (SALMETEROL/FLUTICASONE) [Concomitant]

REACTIONS (1)
  - DEATH [None]
